FAERS Safety Report 7057362-9 (Version None)
Quarter: 2010Q4

REPORT INFORMATION
  Report Type: 
  Country: None (occurrence: None)
  Receive Date: 20101022
  Receipt Date: 20101012
  Transmission Date: 20110411
  Serious: Yes (Other)
  Sender: FDA-Public Use
  Company Number: US-JNJFOC-20101003520

PATIENT
  Age: 85 Year
  Sex: Male
  Weight: 83.92 kg

DRUGS (1)
  1. EXTRA STRENGTH TYLENOL PM RAPID RELEASE [Suspect]
     Indication: INSOMNIA
     Dosage: 1 GELCAP AT NIGHT, 2 NIGHTS IN A ROW
     Route: 048

REACTIONS (4)
  - ABNORMAL DREAMS [None]
  - FEELING ABNORMAL [None]
  - HALLUCINATION [None]
  - PRODUCT QUALITY ISSUE [None]
